FAERS Safety Report 10010949 (Version 1)
Quarter: 2014Q1

REPORT INFORMATION
  Report Type: Spontaneous
  Country: US (occurrence: US)
  Receive Date: 20140314
  Receipt Date: 20140314
  Transmission Date: 20141002
  Serious: Yes (Hospitalization, Other)
  Sender: FDA-Public Use
  Company Number: US-AMGEN-USASP2014016552

PATIENT
  Age: 46 Year
  Sex: Female

DRUGS (3)
  1. ENBREL [Suspect]
     Indication: PSORIASIS
     Dosage: 50 MG, 2 TIMES/WK
     Route: 065
     Dates: start: 200502
  2. HUMIRA [Concomitant]
     Dosage: UNK
  3. STELARA [Concomitant]
     Dosage: UNK

REACTIONS (6)
  - Renal cancer [Recovered/Resolved]
  - Pneumonia [Recovered/Resolved]
  - Sinusitis [Not Recovered/Not Resolved]
  - Injury [Recovered/Resolved]
  - Drug effect incomplete [Recovered/Resolved]
  - Psoriasis [Not Recovered/Not Resolved]
